FAERS Safety Report 13825295 (Version 1)
Quarter: 2017Q3

REPORT INFORMATION
  Report Type: Spontaneous
  Country: US (occurrence: US)
  Receive Date: 20170802
  Receipt Date: 20170802
  Transmission Date: 20171127
  Serious: Yes (Disabling)
  Sender: FDA-Public Use
  Company Number: None

PATIENT
  Age: 64 Year
  Sex: Female
  Weight: 80.1 kg

DRUGS (11)
  1. METFORMIN [Concomitant]
     Active Substance: METFORMIN HYDROCHLORIDE
  2. GABAPENTEN [Concomitant]
     Active Substance: GABAPENTIN
  3. BRIMONIDINE [Concomitant]
     Active Substance: BRIMONIDINE TARTRATE
  4. VITAMIN B12 [Concomitant]
     Active Substance: CYANOCOBALAMIN
  5. JARDIANCE [Suspect]
     Active Substance: EMPAGLIFLOZIN
     Indication: DIABETES MELLITUS
     Dosage: ?          QUANTITY:1 TABLET(S);?
     Route: 048
     Dates: start: 20170305, end: 20170626
  6. DILTIAZEM XR [Concomitant]
     Active Substance: DILTIAZEM
  7. JANUVIA [Concomitant]
     Active Substance: SITAGLIPTIN PHOSPHATE
  8. VITAMIN D3 [Concomitant]
     Active Substance: CHOLECALCIFEROL
  9. LATANAPROST [Concomitant]
     Active Substance: LATANOPROST
  10. FISH OIL [Concomitant]
     Active Substance: FISH OIL
  11. OCUVITE 50 [Concomitant]

REACTIONS (2)
  - Burning sensation [None]
  - Sensory disturbance [None]

NARRATIVE: CASE EVENT DATE: 20170318
